FAERS Safety Report 8790132 (Version 2)
Quarter: 2012Q4

REPORT INFORMATION
  Report Type: 
  Country: US (occurrence: US)
  Receive Date: 20120917
  Receipt Date: 20121109
  Transmission Date: 20130627
  Serious: Yes (Other)
  Sender: FDA-Public Use
  Company Number: US-SANOFI-AVENTIS-2012SA065559

PATIENT
  Age: 65 Year
  Sex: Male
  Weight: 84.8 kg

DRUGS (18)
  1. MULTAQ [Suspect]
     Indication: ATRIAL FIBRILLATION
     Route: 048
     Dates: start: 20100210
  2. ASPIRIN [Concomitant]
  3. B COMPLEX [Concomitant]
  4. VITAMIN D3 [Concomitant]
     Dosage: Dose:2000 unit(s)
  5. COENZYME Q10 [Concomitant]
  6. DABIGATRAN ETEXILATE [Concomitant]
  7. ZETIA [Concomitant]
  8. LESCOL XL [Concomitant]
  9. FUROSEMIDE [Concomitant]
  10. HYDRALAZINE [Concomitant]
  11. LISINOPRIL [Concomitant]
  12. NEBIVOLOL [Concomitant]
  13. NIACIN [Concomitant]
  14. FISH OIL [Concomitant]
  15. ACTOS /USA/ [Concomitant]
  16. ZOLOFT [Concomitant]
  17. LEVITRA [Concomitant]
  18. AMBIEN CR [Concomitant]

REACTIONS (1)
  - Basedow^s disease [Not Recovered/Not Resolved]
